FAERS Safety Report 13933497 (Version 2)
Quarter: 2017Q4

REPORT INFORMATION
  Report Type: Report from Study
  Country: IT (occurrence: IT)
  Receive Date: 20170904
  Receipt Date: 20171013
  Transmission Date: 20180320
  Serious: Yes (Hospitalization)
  Sender: FDA-Public Use
  Company Number: IT-TEVA-801767ACC

PATIENT
  Age: 67 Year
  Sex: Female

DRUGS (5)
  1. BISOPROLOL FUMARATE. [Suspect]
     Active Substance: BISOPROLOL FUMARATE
     Indication: DRUG USE DISORDER
     Route: 048
     Dates: start: 20170812, end: 20170812
  2. INVEGA [Suspect]
     Active Substance: PALIPERIDONE
     Indication: DRUG USE DISORDER
     Route: 048
     Dates: start: 20170812, end: 20170812
  3. TRIATEC - 1,25 MG COMPRESSE - SANOFI S.P.A. [Suspect]
     Active Substance: RAMIPRIL
     Indication: DRUG USE DISORDER
     Route: 048
     Dates: start: 20170812, end: 20170812
  4. TAVOR (LORAZEPAM) [Suspect]
     Active Substance: LORAZEPAM
     Indication: DRUG USE DISORDER
     Route: 048
     Dates: start: 20170812, end: 20170812
  5. NORVASC [Suspect]
     Active Substance: AMLODIPINE BESYLATE
     Indication: DRUG USE DISORDER
     Route: 048
     Dates: start: 20170812, end: 20170812

REACTIONS (3)
  - Loss of consciousness [Recovering/Resolving]
  - Hypotension [Recovering/Resolving]
  - Drug abuse [Recovering/Resolving]

NARRATIVE: CASE EVENT DATE: 20170812
